FAERS Safety Report 20572693 (Version 1)
Quarter: 2022Q1

REPORT INFORMATION
  Report Type: Report from Study
  Country: US (occurrence: US)
  Receive Date: 20220309
  Receipt Date: 20220309
  Transmission Date: 20220423
  Serious: Yes (Other)
  Sender: FDA-Public Use
  Company Number: US-UCBSA-2022011722

PATIENT
  Sex: Female

DRUGS (1)
  1. CERTOLIZUMAB PEGOL [Suspect]
     Active Substance: CERTOLIZUMAB PEGOL
     Indication: Product used for unknown indication
     Dosage: UNK, EV 4 WEEKS
     Dates: start: 2017

REACTIONS (3)
  - Cardiac valve disease [Unknown]
  - Heart valve operation [Unknown]
  - Inflammation [Unknown]

NARRATIVE: CASE EVENT DATE: 20200101
